FAERS Safety Report 7533556-0 (Version None)
Quarter: 2011Q2

REPORT INFORMATION
  Report Type: 
  Country: None (occurrence: None)
  Receive Date: 20110608
  Receipt Date: 20060206
  Transmission Date: 20111010
  Serious: Yes (Other)
  Sender: FDA-Public Use
  Company Number: PHHO2006BR02494

PATIENT
  Age: 76 Year
  Sex: Female
  Weight: 85 kg

DRUGS (2)
  1. VOLTAREN [Suspect]
     Indication: MUSCULOSKELETAL DISCOMFORT
     Dosage: 50 MG, QD
     Route: 048
  2. VALSARTAN [Suspect]
     Dosage: 80 MG, QD
     Route: 048
     Dates: start: 20050101

REACTIONS (2)
  - CATARACT [None]
  - CONJUNCTIVITIS [None]
